FAERS Safety Report 11031223 (Version 1)
Quarter: 2015Q2

REPORT INFORMATION
  Report Type: Spontaneous
  Country: US (occurrence: US)
  Receive Date: 20150415
  Receipt Date: 20150415
  Transmission Date: 20150821
  Serious: No
  Sender: FDA-Public Use
  Company Number: US-ASTRAZENECA-2014SE52672

PATIENT
  Sex: Male

DRUGS (2)
  1. CELEXA [Interacting]
     Active Substance: CITALOPRAM HYDROBROMIDE
     Route: 065
  2. PRILOSEC OTC [Suspect]
     Active Substance: OMEPRAZOLE MAGNESIUM
     Route: 048
     Dates: start: 20140711

REACTIONS (5)
  - Disorientation [Recovering/Resolving]
  - Myalgia [Recovering/Resolving]
  - Drug interaction [Recovering/Resolving]
  - Diarrhoea [Recovering/Resolving]
  - Dizziness [Recovering/Resolving]
